FAERS Safety Report 23954207 (Version 2)
Quarter: 2024Q2

REPORT INFORMATION
  Report Type: Spontaneous
  Country: BR (occurrence: BR)
  Receive Date: 20240609
  Receipt Date: 20240612
  Transmission Date: 20240716
  Serious: Yes (Other)
  Sender: FDA-Public Use
  Company Number: BR-NOVOPROD-1230010

PATIENT
  Age: 44 Year
  Sex: Female
  Weight: 89 kg

DRUGS (2)
  1. OZEMPIC [Suspect]
     Active Substance: SEMAGLUTIDE
     Indication: Diabetes mellitus
     Dosage: 0.25 MG, QW
     Route: 058
     Dates: start: 202302
  2. OZEMPIC [Suspect]
     Active Substance: SEMAGLUTIDE
     Dosage: UNK (INCREASED DOSE)
     Route: 058
     Dates: end: 20240415

REACTIONS (7)
  - Blood glucose increased [Unknown]
  - Device breakage [Unknown]
  - Needle issue [Unknown]
  - Device connection issue [Unknown]
  - Device delivery system issue [Unknown]
  - Product storage error [Unknown]
  - Off label use [Unknown]
